FAERS Safety Report 4332667-0 (Version None)
Quarter: 2004Q1

REPORT INFORMATION
  Report Type: 
  Country: None (occurrence: None)
  Receive Date: 20040330
  Receipt Date: 20040317
  Transmission Date: 20041129
  Serious: Yes (Hospitalization)
  Sender: FDA-Public Use
  Company Number: 2004204793IT

PATIENT
  Age: 54 Year
  Sex: Female

DRUGS (4)
  1. ZYVOXID (LINEZOLID) TABLET [Suspect]
     Indication: ENDOCARDITIS
     Dosage: 600 MG, BID, ORAL
     Route: 048
     Dates: start: 20040130, end: 20040307
  2. VALPROATE SODIUM [Suspect]
     Dosage: 1000 MG, DAILY, ORAL
     Route: 048
     Dates: start: 20031205, end: 20040309
  3. DIFLUCAN [Concomitant]
  4. LASIX [Concomitant]

REACTIONS (3)
  - HAEMORRHAGIC DISORDER [None]
  - NORMOCHROMIC NORMOCYTIC ANAEMIA [None]
  - THROMBOCYTOPENIA [None]
